FAERS Safety Report 4833961-7 (Version None)
Quarter: 2005Q4

REPORT INFORMATION
  Report Type: 
  Country: None (occurrence: None)
  Receive Date: 20051118
  Receipt Date: 20051118
  Transmission Date: 20060501
  Serious: Yes (Other)
  Sender: FDA-Public Use
  Company Number: None

PATIENT
  Age: 80 Year
  Sex: Male
  Weight: 66.5 kg

DRUGS (11)
  1. LISINOPRIL [Suspect]
  2. LOVASTATIN [Concomitant]
  3. FOSINOPRIL [Concomitant]
  4. DIPYRIDAMOLE [Concomitant]
  5. OMEPRAZOLE FUMARATE [Concomitant]
  6. SERTRALINE HCL [Concomitant]
  7. HYDROXYZINE PAMOATE [Concomitant]
  8. POTASSIUM CHLORIDE [Concomitant]
  9. ASPIRIN [Concomitant]
  10. FERROUS SO4 [Concomitant]
  11. ACETAMINOPHEN [Concomitant]

REACTIONS (1)
  - CONFUSIONAL STATE [None]
